FAERS Safety Report 4642545-5 (Version None)
Quarter: 2005Q2

REPORT INFORMATION
  Report Type: 
  Country: None (occurrence: None)
  Receive Date: 20050422
  Receipt Date: 20050414
  Transmission Date: 20051028
  Serious: Yes (Other)
  Sender: FDA-Public Use
  Company Number: PHHO2005FR06121

PATIENT
  Age: 38 Year
  Sex: Female

DRUGS (1)
  1. GLEEVEC [Suspect]
     Indication: CHRONIC MYELOID LEUKAEMIA
     Route: 048
     Dates: start: 20050322, end: 20050327

REACTIONS (5)
  - AZOTAEMIA [None]
  - BLOOD URIC ACID INCREASED [None]
  - CHONDROCALCINOSIS [None]
  - JOINT EFFUSION [None]
  - PLATELET COUNT DECREASED [None]
